FAERS Safety Report 9225361 (Version 1)
Quarter: 2013Q1

REPORT INFORMATION
  Report Type: Spontaneous
  Country: US (occurrence: None)
  Receive Date: 20121001
  Receipt Date: 20121001
  Transmission Date: 20140127
  Serious: Yes (Life-Threatening, Other)
  Sender: FDA-Public Use
  Company Number: 20120022

PATIENT
  Age: 79 Year
  Sex: Male

DRUGS (5)
  1. GLYCOPYRROLATE [Suspect]
     Indication: GASTROINTESTINAL DISORDER
     Dosage: 0.2 MG INJECTION NOS
     Dates: start: 20120105, end: 20120105
  2. ADVAIR [Concomitant]
  3. LASIX [Concomitant]
  4. LIPTOR [Concomitant]
  5. OMEPRAZOLE [Concomitant]

REACTIONS (1)
  - Respiratory arrest [None]
